FAERS Safety Report 7774524-3 (Version None)
Quarter: 2011Q3

REPORT INFORMATION
  Report Type: 
  Country: None (occurrence: None)
  Receive Date: 20110923
  Receipt Date: 20110923
  Transmission Date: 20111222
  Serious: Yes (Life-Threatening, Hospitalization)
  Sender: FDA-Public Use
  Company Number: None

PATIENT
  Age: 46 Year
  Sex: Female
  Weight: 90.718 kg

DRUGS (1)
  1. ZOLPIDEM TARTRATE [Suspect]
     Indication: SLEEP DISORDER
     Dosage: TAKE ONE 12.5 MG PILL A NIGHT
     Dates: start: 20110918, end: 20110919

REACTIONS (12)
  - PAIN [None]
  - ABNORMAL SLEEP-RELATED EVENT [None]
  - RASH [None]
  - CONFUSIONAL STATE [None]
  - INSOMNIA [None]
  - SOMNOLENCE [None]
  - ANXIETY [None]
  - DYSPHEMIA [None]
  - DYSPNOEA [None]
  - SOMNAMBULISM [None]
  - HALLUCINATION [None]
  - SLEEP-RELATED EATING DISORDER [None]
